FAERS Safety Report 7720678-4 (Version None)
Quarter: 2011Q3

REPORT INFORMATION
  Report Type: 
  Country: None (occurrence: None)
  Receive Date: 20110831
  Receipt Date: 20110823
  Transmission Date: 20111222
  Serious: Yes (Other)
  Sender: FDA-Public Use
  Company Number: PHEH2010US03428

PATIENT
  Sex: Female

DRUGS (4)
  1. AREDIA [Suspect]
  2. FLONASE [Concomitant]
  3. SYNTHROID [Concomitant]
  4. PERIDEX [Concomitant]

REACTIONS (20)
  - INJURY [None]
  - PAIN IN EXTREMITY [None]
  - NEOPLASM MALIGNANT [None]
  - ANXIETY [None]
  - INTERVERTEBRAL DISC DEGENERATION [None]
  - OSTEOPOROSIS [None]
  - PAIN [None]
  - RENAL FAILURE [None]
  - MUSCLE STRAIN [None]
  - BONE LESION [None]
  - OSTEONECROSIS OF JAW [None]
  - FUNGAEMIA [None]
  - HERPES SIMPLEX [None]
  - ANHEDONIA [None]
  - ANAEMIA [None]
  - LEUKAEMIA [None]
  - FEMORAL NECK FRACTURE [None]
  - ARTHRITIS [None]
  - DISABILITY [None]
  - MUSCULOSKELETAL STIFFNESS [None]
